FAERS Safety Report 4735078-9 (Version None)
Quarter: 2005Q3

REPORT INFORMATION
  Report Type: 
  Country: None (occurrence: None)
  Receive Date: 20050804
  Receipt Date: 20050506
  Transmission Date: 20060218
  Serious: Yes (Other)
  Sender: FDA-Public Use
  Company Number: US-MERCK-0505USA00885

PATIENT
  Age: 56 Year
  Sex: Female
  Weight: 48 kg

DRUGS (14)
  1. VIOXX [Suspect]
     Indication: OSTEOARTHRITIS
     Route: 048
     Dates: start: 20010831, end: 20040223
  2. VIOXX [Suspect]
     Route: 048
     Dates: start: 20010831, end: 20040223
  3. OXYBUTYNIN [Concomitant]
     Route: 065
  4. CLONAZEPAM [Concomitant]
     Route: 065
  5. ARICEPT [Concomitant]
     Route: 065
  6. LISINOPRIL [Concomitant]
     Route: 065
  7. OMEPRAZOLE [Concomitant]
     Route: 065
  8. OMEPRAZOLE [Concomitant]
     Route: 065
  9. PAXIL [Concomitant]
     Route: 065
  10. PAXIL [Concomitant]
     Route: 065
  11. TOPROL-XL [Concomitant]
     Route: 065
  12. NORVASC [Concomitant]
     Route: 065
  13. LIPITOR [Concomitant]
     Route: 065
  14. NORTRIPTYLINE [Concomitant]
     Route: 065

REACTIONS (9)
  - BLADDER DISORDER [None]
  - BLOOD CHOLESTEROL INCREASED [None]
  - CEREBROVASCULAR ACCIDENT [None]
  - DEMENTIA ALZHEIMER'S TYPE [None]
  - DEPRESSION [None]
  - HYPERTENSION [None]
  - INTESTINAL ULCER [None]
  - RENAL IMPAIRMENT [None]
  - SLEEP DISORDER [None]
